FAERS Safety Report 23518678 (Version 1)
Quarter: 2024Q1

REPORT INFORMATION
  Report Type: Report from Study
  Country: US (occurrence: None)
  Receive Date: 20240213
  Receipt Date: 20240213
  Transmission Date: 20240410
  Serious: Yes (Other)
  Sender: FDA-Public Use
  Company Number: 2024A031366

PATIENT
  Sex: Female
  Weight: 70.8 kg

DRUGS (2)
  1. LYNPARZA [Suspect]
     Active Substance: OLAPARIB
     Dosage: 600.0MG UNKNOWN
     Route: 048
     Dates: start: 202308
  2. LYNPARZA [Suspect]
     Active Substance: OLAPARIB
     Dosage: 500.0MG UNKNOWN
     Route: 048
     Dates: start: 202309

REACTIONS (4)
  - Dehydration [Recovering/Resolving]
  - Fatigue [Recovering/Resolving]
  - Loss of personal independence in daily activities [Unknown]
  - Weight fluctuation [Unknown]
